FAERS Safety Report 13989903 (Version 1)
Quarter: 2017Q3

REPORT INFORMATION
  Report Type: Spontaneous
  Country: US (occurrence: None)
  Receive Date: 20170920
  Receipt Date: 20170920
  Transmission Date: 20171128
  Serious: Yes (Other)
  Sender: FDA-Public Use
  Company Number: None

PATIENT
  Age: 67 Year
  Sex: Female

DRUGS (1)
  1. REVLIMID [Suspect]
     Active Substance: LENALIDOMIDE
     Indication: PLASMA CELL MYELOMA
     Dosage: END DATE USED PER NARRATIVE
     Route: 048
     Dates: start: 20170819, end: 20170828

REACTIONS (2)
  - Diarrhoea [None]
  - Therapy cessation [None]

NARRATIVE: CASE EVENT DATE: 20170824
